FAERS Safety Report 5161961-9 (Version None)
Quarter: 2006Q4

REPORT INFORMATION
  Report Type: 
  Country: None (occurrence: None)
  Receive Date: 20061130
  Receipt Date: 20040506
  Transmission Date: 20070319
  Serious: Yes (Hospitalization, Other)
  Sender: FDA-Public Use
  Company Number: US-ELI_LILLY_AND_COMPANY-USA040566808

PATIENT
  Age: 61 Year
  Sex: Female
  Weight: 73.636 kg

DRUGS (7)
  1. ILETIN [Suspect]
     Indication: DIABETES MELLITUS
     Dosage: 40 U, DAILY (1/D)
     Dates: start: 19600101
  2. HUMULIN 50/50 [Suspect]
     Indication: DIABETES MELLITUS
     Dosage: UNK, UNKNOWN
  3. HUMULIN 50/50 [Suspect]
     Dosage: 25 U, 2/D
     Route: 058
  4. VICODIN [Concomitant]
     Dosage: UNK, UNKNOWN
  5. FOSAMAX [Concomitant]
     Dosage: UNK, UNKNOWN
  6. PRILOSEC [Concomitant]
     Indication: DYSPEPSIA
     Dosage: UNK, UNKNOWN
  7. DETROL [Concomitant]
     Dosage: UNK, UNKNOWN

REACTIONS (16)
  - BLOOD GLUCOSE DECREASED [None]
  - BLOOD GLUCOSE INCREASED [None]
  - DYSPEPSIA [None]
  - EATING DISORDER [None]
  - HIP FRACTURE [None]
  - HYPERVENTILATION [None]
  - HYPOGLYCAEMIA [None]
  - LOSS OF CONSCIOUSNESS [None]
  - LOWER LIMB FRACTURE [None]
  - MALAISE [None]
  - PAIN [None]
  - PHARYNGITIS STREPTOCOCCAL [None]
  - ROAD TRAFFIC ACCIDENT [None]
  - SKIN DISORDER [None]
  - TONSILLITIS [None]
  - VIRAL INFECTION [None]
